FAERS Safety Report 7213960 (Version 2)
Quarter: 2024Q1

REPORT INFORMATION
  Report Type: Spontaneous
  Country: ES (occurrence: ES)
  Receive Date: 20091214
  Receipt Date: 20240320
  Transmission Date: 20240410
  Serious: Yes (Death)
  Sender: FDA-Public Use
  Company Number: ES-AGEMED-208799334

PATIENT
  Age: 55 Year
  Sex: Male
  Weight: 75 kg

DRUGS (3)
  1. XELODA [Suspect]
     Active Substance: CAPECITABINE
     Indication: Colorectal cancer
     Dosage: HIGH/MA/12H DAYS 1-14 EVERY 21 DAYS
     Route: 048
     Dates: start: 20081202, end: 20090224
  2. AVASTIN [Suspect]
     Active Substance: BEVACIZUMAB
     Indication: Colorectal cancer
     Dosage: 7.5MG/KG/DAY EVERY 21 DAYS
     Route: 065
     Dates: start: 20081202, end: 20090224
  3. IRINOTECAN [Suspect]
     Active Substance: IRINOTECAN
     Indication: Colorectal cancer
     Dosage: 240 MG/M/DAY ON DECEMBER 21
     Route: 065
     Dates: start: 20081202, end: 20090224

REACTIONS (1)
  - Haemoptysis [Fatal]

NARRATIVE: CASE EVENT DATE: 20090305
